FAERS Safety Report 9461547 (Version 1)
Quarter: 2013Q3

REPORT INFORMATION
  Report Type: Spontaneous
  Country: US (occurrence: US)
  Receive Date: 20130816
  Receipt Date: 20130816
  Transmission Date: 20140515
  Serious: Yes (Hospitalization, Other)
  Sender: FDA-Public Use
  Company Number: US-BRISTOL-MYERS SQUIBB COMPANY-19174200

PATIENT
  Age: 63 Year
  Sex: Female
  Weight: 97.5 kg

DRUGS (4)
  1. ABILIFY [Suspect]
     Indication: BIPOLAR DISORDER
  2. VICODIN [Concomitant]
     Dosage: TAKING 14 VICODIN 10MG TABLETS
  3. CYMBALTA [Concomitant]
  4. LAMICTAL [Concomitant]

REACTIONS (2)
  - Suicide attempt [Unknown]
  - Stress [Unknown]
